FAERS Safety Report 8328626-3 (Version None)
Quarter: 2012Q2

REPORT INFORMATION
  Report Type: 
  Country: None (occurrence: None)
  Receive Date: 20120502
  Receipt Date: 20100805
  Transmission Date: 20120825
  Serious: No
  Sender: FDA-Public Use
  Company Number: US-TEVA-2010004153

PATIENT
  Sex: Male
  Weight: 90.8 kg

DRUGS (7)
  1. SIMVASTATIN [Concomitant]
     Dates: start: 20070101
  2. LOSARTAN POTASSIUM AND HYDROCHLOROTHIAZIDE [Concomitant]
     Dates: start: 20100512
  3. AMBIEN CR [Concomitant]
  4. NUVIGIL [Suspect]
     Indication: FATIGUE
     Dosage: 150 MILLIGRAM;
     Route: 048
     Dates: start: 20100803
  5. NIASPAN [Concomitant]
     Dates: start: 20070101
  6. EYE DROPS [Concomitant]
  7. FINASTERIDE [Concomitant]
     Dates: start: 20100617

REACTIONS (2)
  - INSOMNIA [None]
  - DRUG INEFFECTIVE FOR UNAPPROVED INDICATION [None]
